FAERS Safety Report 23924565 (Version 8)
Quarter: 2024Q4

REPORT INFORMATION
  Report Type: Spontaneous
  Country: US (occurrence: US)
  Receive Date: 20240531
  Receipt Date: 20241016
  Transmission Date: 20250114
  Serious: No
  Sender: PFIZER
  Company Number: US-PFIZER INC-202400180571

PATIENT
  Age: 13 Year
  Sex: Female

DRUGS (3)
  1. GENOTROPIN [Suspect]
     Active Substance: SOMATROPIN
     Dosage: 1.2 MG, ALTERNATE DAY (DAILY)
  2. GENOTROPIN [Suspect]
     Active Substance: SOMATROPIN
     Dosage: 1.4 MG, ALTERNATE DAY (DAILY)
  3. GENOTROPIN [Suspect]
     Active Substance: SOMATROPIN
     Dosage: 1.3 MG, DAILY (EVERY EVENING)
     Route: 030
     Dates: start: 202404

REACTIONS (4)
  - Product dose omission issue [Unknown]
  - Device mechanical issue [Unknown]
  - Device breakage [Unknown]
  - Off label use [Unknown]

NARRATIVE: CASE EVENT DATE: 20240522
